FAERS Safety Report 9547055 (Version 1)
Quarter: 2013Q2

REPORT INFORMATION
  Report Type: Spontaneous
  Country: US (occurrence: None)
  Receive Date: 20130606
  Receipt Date: 20130606
  Transmission Date: 20140414
  Serious: Yes (Other)
  Sender: FDA-Public Use
  Company Number: 163-POMAL-13044668

PATIENT
  Age: 65 Year
  Sex: Male
  Weight: 50.4 kg

DRUGS (13)
  1. POMALYST [Suspect]
     Indication: PLASMA CELL MYELOMA
     Dosage: 3 MG, 21 IN 28 D PO
     Route: 048
     Dates: start: 20130304, end: 20130403
  2. ASPIRIN(ACETYLSALICYLIC ACID) [Concomitant]
  3. BRIMONIDINE(BRIMONIDINE)(EYE DROPS) [Concomitant]
  4. DEXAMETHASONE(DEXAMETHASONE) [Concomitant]
  5. FOLIC ACID(FOLIC ACID)(TABLETS) [Concomitant]
  6. FUROSEMIDE(FUROSEMIDE)(TABLETS) [Concomitant]
  7. INSULIN ASPART(INSULIN ASPART)(INJECTION) [Concomitant]
  8. INSULIN GLARGINE(INSULIN GLARGINE)(INJECTION) [Concomitant]
  9. LATANOPROST(LATANOPROST) [Concomitant]
  10. METOPROLOL TARTRATE (METOPROLOL TARTRATE) [Concomitant]
  11. ONDANSETRON(ONDANSETRON)(TABLETS) [Concomitant]
  12. OXYCODONE(OXYCODONE)(TABLETS) [Concomitant]
  13. ARANESP(DARBEPOETIN ALFA) [Concomitant]

REACTIONS (2)
  - Pyrexia [None]
  - Haemoglobin decreased [None]
